FAERS Safety Report 20043322 (Version 1)
Quarter: 2021Q4

REPORT INFORMATION
  Report Type: Spontaneous
  Country: CA (occurrence: None)
  Receive Date: 20211108
  Receipt Date: 20211108
  Transmission Date: 20220303
  Serious: Yes (Other)
  Sender: FDA-Public Use
  Company Number: CA-ROCHE-2949693

PATIENT
  Age: 80 Year
  Sex: Male

DRUGS (18)
  1. RITUXIMAB [Suspect]
     Active Substance: RITUXIMAB
     Indication: Vasculitis
     Route: 041
  2. RITUXIMAB [Suspect]
     Active Substance: RITUXIMAB
     Indication: Rheumatoid arthritis
     Route: 041
  3. RITUXIMAB [Suspect]
     Active Substance: RITUXIMAB
     Indication: Granulomatosis with polyangiitis
  4. RITUXIMAB [Suspect]
     Active Substance: RITUXIMAB
     Indication: Vasculitis
     Route: 065
  5. RITUXIMAB [Suspect]
     Active Substance: RITUXIMAB
     Indication: Rheumatoid arthritis
     Route: 065
  6. RITUXIMAB [Suspect]
     Active Substance: RITUXIMAB
     Indication: Granulomatosis with polyangiitis
     Route: 065
  7. RITUXIMAB [Suspect]
     Active Substance: RITUXIMAB
     Route: 065
  8. ACETAMINOPHEN [Concomitant]
     Active Substance: ACETAMINOPHEN
     Indication: Premedication
     Route: 048
  9. ATORVASTATIN [Concomitant]
     Active Substance: ATORVASTATIN
     Route: 048
  10. BENADRYL [Concomitant]
     Active Substance: DIPHENHYDRAMINE HYDROCHLORIDE
     Indication: Premedication
     Route: 048
  11. CALCIUM [Concomitant]
     Active Substance: CALCIUM
     Route: 048
  12. DABIGATRAN ETEXILATE MESYLATE [Concomitant]
     Active Substance: DABIGATRAN ETEXILATE MESYLATE
     Route: 048
  13. DILTIAZEM [Concomitant]
     Active Substance: DILTIAZEM
     Route: 048
  14. ENALAPRIL [Concomitant]
     Active Substance: ENALAPRIL
     Route: 048
  15. METFORMIN [Concomitant]
     Active Substance: METFORMIN HYDROCHLORIDE
     Route: 048
  16. METHYLPREDNISOLONE [Concomitant]
     Active Substance: METHYLPREDNISOLONE
     Route: 042
  17. METOPROLOL [Concomitant]
     Active Substance: METOPROLOL
     Route: 048
  18. OMEPRAZOLE [Concomitant]
     Active Substance: OMEPRAZOLE
     Route: 048

REACTIONS (6)
  - Dyspnoea [Recovered/Resolved]
  - Fatigue [Recovered/Resolved]
  - Lung disorder [Recovered/Resolved]
  - Nasopharyngitis [Recovered/Resolved]
  - Pneumonia [Recovered/Resolved]
  - Sinusitis [Recovered/Resolved]
